FAERS Safety Report 12652238 (Version 3)
Quarter: 2016Q3

REPORT INFORMATION
  Report Type: Spontaneous
  Country: US (occurrence: US)
  Receive Date: 20160815
  Receipt Date: 20160919
  Transmission Date: 20161109
  Serious: Yes (Death, Hospitalization)
  Sender: FDA-Public Use
  Company Number: US-SMITH AND NEPHEW, INC-2016SMT00669

PATIENT
  Age: 66 Year
  Sex: Female
  Weight: 78.5 kg

DRUGS (1)
  1. REGRANEX [Suspect]
     Active Substance: BECAPLERMIN
     Indication: WOUND
     Dosage: UNK
     Dates: start: 201607

REACTIONS (3)
  - Dehydration [Fatal]
  - Hypophagia [Fatal]
  - Peritonitis [Fatal]

NARRATIVE: CASE EVENT DATE: 201607
